FAERS Safety Report 5452690-2 (Version None)
Quarter: 2007Q3

REPORT INFORMATION
  Report Type: 
  Country: None (occurrence: None)
  Receive Date: 20070914
  Receipt Date: 20070905
  Transmission Date: 20080115
  Serious: Yes (Other)
  Sender: FDA-Public Use
  Company Number: FR-JNJFOC-20070901768

PATIENT
  Age: 29 Year
  Sex: Female
  Weight: 73 kg

DRUGS (5)
  1. RISPERDAL CONSTA [Suspect]
     Indication: PSYCHOTIC DISORDER
     Route: 030
  2. RISPERDAL [Suspect]
     Indication: PSYCHOTIC DISORDER
     Route: 048
  3. CYPROTERONE/ETHINYL ESTRADIOL [Suspect]
     Indication: HYPERANDROGENISM
     Route: 048
  4. LEPTICUR [Concomitant]
  5. DEPAKOTE [Concomitant]

REACTIONS (8)
  - ALOPECIA [None]
  - BLOOD TESTOSTERONE INCREASED [None]
  - FATIGUE [None]
  - HYPERPROLACTINAEMIA [None]
  - MYALGIA [None]
  - OEDEMA PERIPHERAL [None]
  - PULMONARY EMBOLISM [None]
  - THROMBOPHLEBITIS [None]
